FAERS Safety Report 5139386-1 (Version None)
Quarter: 2006Q4

REPORT INFORMATION
  Report Type: 
  Country: None (occurrence: None)
  Receive Date: 20061030
  Receipt Date: 20031208
  Transmission Date: 20070319
  Serious: No
  Sender: FDA-Public Use
  Company Number: US-GLAXOSMITHKLINE-A0442313A

PATIENT
  Age: 62 Year
  Sex: Female

DRUGS (4)
  1. SEREVENT [Suspect]
     Indication: ASTHMA
     Dosage: 1PUFF PER DAY
     Route: 055
     Dates: start: 20031101, end: 20031201
  2. FLOVENT [Suspect]
     Indication: ASTHMA
     Route: 055
  3. SINGULAIR [Concomitant]
  4. FLONASE [Concomitant]

REACTIONS (3)
  - APHONIA [None]
  - COUGH [None]
  - DRUG INEFFECTIVE [None]
